FAERS Safety Report 8600999-3 (Version None)
Quarter: 2012Q3

REPORT INFORMATION
  Report Type: 
  Country: None (occurrence: None)
  Receive Date: 20120805
  Receipt Date: 20120723
  Transmission Date: 20120928
  Serious: Yes (Hospitalization, Other)
  Sender: FDA-Public Use
  Company Number: JPI-P-022734

PATIENT
  Age: 63 Year
  Sex: Male
  Weight: 68.0396 kg

DRUGS (34)
  1. XYREM [Suspect]
     Indication: PAIN
     Dosage: 4.5 GM (2.25 GM, 2 IN 1 D), ORAL 9 GM (4.5 GM, 2 IN 1 D), ORAL
     Route: 048
     Dates: start: 20030101, end: 20030101
  2. XYREM [Suspect]
     Indication: NARCOLEPSY
     Dosage: 4.5 GM (2.25 GM, 2 IN 1 D), ORAL 9 GM (4.5 GM, 2 IN 1 D), ORAL
     Route: 048
     Dates: start: 20030101, end: 20030101
  3. XYREM [Suspect]
     Indication: POST-TRAUMATIC STRESS DISORDER
     Dosage: 4.5 GM (2.25 GM, 2 IN 1 D), ORAL 9 GM (4.5 GM, 2 IN 1 D), ORAL
     Route: 048
     Dates: start: 20030101, end: 20030101
  4. XYREM [Suspect]
     Indication: SOMNOLENCE
     Dosage: 4.5 GM (2.25 GM, 2 IN 1 D), ORAL 9 GM (4.5 GM, 2 IN 1 D), ORAL
     Route: 048
     Dates: start: 20030101, end: 20030101
  5. XYREM [Suspect]
     Indication: CHRONIC FATIGUE SYNDROME
     Dosage: 4.5 GM (2.25 GM, 2 IN 1 D), ORAL 9 GM (4.5 GM, 2 IN 1 D), ORAL
     Route: 048
     Dates: start: 20030101, end: 20030101
  6. XYREM [Suspect]
     Indication: PAIN
     Dosage: 4.5 GM (2.25 GM, 2 IN 1 D), ORAL 9 GM (4.5 GM, 2 IN 1 D), ORAL
     Route: 048
     Dates: start: 20031003
  7. XYREM [Suspect]
     Indication: NARCOLEPSY
     Dosage: 4.5 GM (2.25 GM, 2 IN 1 D), ORAL 9 GM (4.5 GM, 2 IN 1 D), ORAL
     Route: 048
     Dates: start: 20031003
  8. XYREM [Suspect]
     Indication: POST-TRAUMATIC STRESS DISORDER
     Dosage: 4.5 GM (2.25 GM, 2 IN 1 D), ORAL 9 GM (4.5 GM, 2 IN 1 D), ORAL
     Route: 048
     Dates: start: 20031003
  9. XYREM [Suspect]
     Indication: SOMNOLENCE
     Dosage: 4.5 GM (2.25 GM, 2 IN 1 D), ORAL 9 GM (4.5 GM, 2 IN 1 D), ORAL
     Route: 048
     Dates: start: 20031003
  10. XYREM [Suspect]
     Indication: CHRONIC FATIGUE SYNDROME
     Dosage: 4.5 GM (2.25 GM, 2 IN 1 D), ORAL 9 GM (4.5 GM, 2 IN 1 D), ORAL
     Route: 048
     Dates: start: 20031003
  11. XYREM [Suspect]
     Indication: PAIN
     Dosage: 4.5 GM (2.25 GM, 2 IN 1 D), ORAL 9 GM (4.5 GM, 2 IN 1 D), ORAL
     Route: 048
     Dates: start: 20030915
  12. XYREM [Suspect]
     Indication: NARCOLEPSY
     Dosage: 4.5 GM (2.25 GM, 2 IN 1 D), ORAL 9 GM (4.5 GM, 2 IN 1 D), ORAL
     Route: 048
     Dates: start: 20030915
  13. XYREM [Suspect]
     Indication: POST-TRAUMATIC STRESS DISORDER
     Dosage: 4.5 GM (2.25 GM, 2 IN 1 D), ORAL 9 GM (4.5 GM, 2 IN 1 D), ORAL
     Route: 048
     Dates: start: 20030915
  14. XYREM [Suspect]
     Indication: SOMNOLENCE
     Dosage: 4.5 GM (2.25 GM, 2 IN 1 D), ORAL 9 GM (4.5 GM, 2 IN 1 D), ORAL
     Route: 048
     Dates: start: 20030915
  15. XYREM [Suspect]
     Indication: CHRONIC FATIGUE SYNDROME
     Dosage: 4.5 GM (2.25 GM, 2 IN 1 D), ORAL 9 GM (4.5 GM, 2 IN 1 D), ORAL
     Route: 048
     Dates: start: 20030915
  16. METFORMIN HCL [Suspect]
     Indication: GLUCOSE TOLERANCE IMPAIRED
     Dosage: 2000 MG (1000 MG, 2 IN 1 D)
     Dates: start: 20080101
  17. MIRTAZAPINE [Suspect]
     Indication: PRODUCT USED FOR UNKNOWN INDICATION
  18. ALPRAZOLAM [Concomitant]
  19. ATENOLOL [Suspect]
     Indication: BLOOD PRESSURE INCREASED
  20. BUSPIRONE HCL [Concomitant]
  21. ROFECOXIB [Concomitant]
  22. TESTOSTERONE [Concomitant]
  23. OLANZAPINE [Concomitant]
  24. LORATADINE [Concomitant]
  25. CELECOXIB [Concomitant]
  26. LAMOTRIGINE [Concomitant]
  27. IBUPROFEN [Suspect]
     Indication: PRODUCT USED FOR UNKNOWN INDICATION
  28. IRBESARTAN [Concomitant]
  29. ZOLPIDEM [Concomitant]
  30. DEXEDRINE [Concomitant]
  31. HYDROCODONE BITARTRATE + ACETAMINOPHEN [Concomitant]
  32. PIROXICAM [Concomitant]
  33. LISINOPRIL [Concomitant]
  34. VENLAFAXINE [Concomitant]

REACTIONS (5)
  - HAEMORRHAGIC STROKE [None]
  - ANXIETY DISORDER [None]
  - BLOOD PRESSURE DECREASED [None]
  - GLUCOSE TOLERANCE IMPAIRED [None]
  - WEIGHT DECREASED [None]
